FAERS Safety Report 13656700 (Version 1)
Quarter: 2017Q2

REPORT INFORMATION
  Report Type: Spontaneous
  Country: US (occurrence: US)
  Receive Date: 20170615
  Receipt Date: 20170615
  Transmission Date: 20170830
  Serious: No
  Sender: FDA-Public Use
  Company Number: US-BIOGEN-2017BI00415242

PATIENT
  Sex: Male

DRUGS (1)
  1. TYSABRI [Suspect]
     Active Substance: NATALIZUMAB
     Indication: MULTIPLE SCLEROSIS
     Route: 042
     Dates: start: 20170406

REACTIONS (6)
  - Pain [Unknown]
  - Reflexes abnormal [Unknown]
  - Vertigo [Unknown]
  - Dysphagia [Unknown]
  - Nausea [Unknown]
  - Fatigue [Unknown]
